FAERS Safety Report 8607016 (Version 2)
Quarter: 2013Q3

REPORT INFORMATION
  Report Type: Spontaneous
  Country: US (occurrence: US)
  Receive Date: 20120611
  Receipt Date: 20130722
  Transmission Date: 20140515
  Serious: Yes (Hospitalization, Other)
  Sender: FDA-Public Use
  Company Number: US-ASTRAZENECA-2012SE34583

PATIENT
  Age: 60 Year
  Sex: Female
  Weight: 72.6 kg

DRUGS (21)
  1. NEXIUM [Suspect]
     Indication: GASTROOESOPHAGEAL REFLUX DISEASE
     Route: 048
  2. NEXIUM [Suspect]
     Indication: ULCER
     Route: 048
  3. NEXIUM [Suspect]
     Indication: GASTRIC DISORDER
     Route: 048
  4. PRILOSEC [Suspect]
     Route: 048
  5. PREVACID [Concomitant]
     Indication: GASTROOESOPHAGEAL REFLUX DISEASE
  6. PREVACID [Concomitant]
     Indication: ULCER
  7. MILK OF MAGNESIA [Concomitant]
  8. HYDROCODONE [Concomitant]
     Indication: GASTRIC DISORDER
  9. CALCITROL [Concomitant]
     Indication: GASTRIC DISORDER
  10. AMITRIPTYLINE [Concomitant]
     Indication: GASTRIC DISORDER
  11. CREON [Concomitant]
     Indication: GASTRIC DISORDER
  12. DICYCLOMINE [Concomitant]
     Indication: GASTRIC DISORDER
  13. DONEPEZIL [Concomitant]
     Indication: ANTICOAGULANT THERAPY
  14. B12 SHOT [Concomitant]
  15. LASIX [Concomitant]
     Indication: FLUID RETENTION
  16. LISINOPRIL [Concomitant]
     Indication: BLOOD PRESSURE ABNORMAL
  17. METOPROLOL [Concomitant]
     Indication: BLOOD PRESSURE ABNORMAL
     Route: 048
  18. SYNTHROID [Concomitant]
     Indication: THYROID DISORDER
  19. FERROUS SULFATE [Concomitant]
     Indication: MINERAL SUPPLEMENTATION
  20. BONIVA [Concomitant]
     Indication: BONE DISORDER
  21. VITAMIN D [Concomitant]
     Indication: BONE DISORDER

REACTIONS (15)
  - Thrombosis [Unknown]
  - Infection [Unknown]
  - Pelvic fracture [Unknown]
  - Malnutrition [Unknown]
  - Osteoporosis [Unknown]
  - Bone density decreased [Unknown]
  - Arthritis [Unknown]
  - Bone disorder [Unknown]
  - Bone pain [Unknown]
  - Multiple fractures [Unknown]
  - Calcium deficiency [Unknown]
  - Diabetes mellitus [Unknown]
  - Hypothyroidism [Unknown]
  - Malabsorption [Unknown]
  - Vitamin D deficiency [Unknown]
